FAERS Safety Report 7291121-7 (Version None)
Quarter: 2011Q1

REPORT INFORMATION
  Report Type: 
  Country: None (occurrence: None)
  Receive Date: 20110202
  Receipt Date: 20110127
  Transmission Date: 20110831
  Serious: Yes (Hospitalization, Other)
  Sender: FDA-Public Use
  Company Number: 2011SP001706

PATIENT
  Age: 25 Year
  Sex: Male

DRUGS (1)
  1. CORICIDIN [Suspect]
     Indication: PRODUCT USED FOR UNKNOWN INDICATION
     Dosage: ; PO
     Route: 048
     Dates: start: 20060101

REACTIONS (16)
  - BIPOLAR DISORDER [None]
  - MANIA [None]
  - OVERDOSE [None]
  - TACHYCARDIA [None]
  - ELECTROLYTE IMBALANCE [None]
  - ERYTHEMA [None]
  - SPEECH DISORDER [None]
  - PSYCHOTIC DISORDER [None]
  - IRRITABILITY [None]
  - UNRESPONSIVE TO STIMULI [None]
  - DELUSION [None]
  - SLEEP DISORDER [None]
  - COMA [None]
  - PALPITATIONS [None]
  - FEELING HOT [None]
  - CRYING [None]
